FAERS Safety Report 15238589 (Version 1)
Quarter: 2018Q3

REPORT INFORMATION
  Report Type: Spontaneous
  Country: US (occurrence: US)
  Receive Date: 20180710
  Receipt Date: 20180710
  Transmission Date: 20181010
  Serious: No
  Sender: FDA-Public Use
  Company Number: None

PATIENT
  Age: 80 Year
  Sex: Male
  Weight: 72.9 kg

DRUGS (8)
  1. RADICAVA [Suspect]
     Active Substance: EDARAVONE
     Indication: AMYOTROPHIC LATERAL SCLEROSIS
     Dosage: ?          QUANTITY:1 100 ML BAG;?
     Route: 042
     Dates: start: 20170904
  2. VITAMIN D3 [Concomitant]
     Active Substance: CHOLECALCIFEROL
  3. APIXABAN [Concomitant]
     Active Substance: APIXABAN
  4. RILUZOLE. [Concomitant]
     Active Substance: RILUZOLE
  5. VITAMIN B12 [Concomitant]
     Active Substance: CYANOCOBALAMIN
  6. ACETYL L?CARNITINE [Concomitant]
     Active Substance: ACETYLCARNITINE
  7. MEXILETINE [Concomitant]
     Active Substance: MEXILETINE
  8. ROSUVASTATIN. [Concomitant]
     Active Substance: ROSUVASTATIN

REACTIONS (1)
  - Product container issue [None]

NARRATIVE: CASE EVENT DATE: 20180705
